FAERS Safety Report 9312301 (Version 2)
Quarter: 2013Q2

REPORT INFORMATION
  Report Type: Spontaneous
  Country: US (occurrence: US)
  Receive Date: 20130528
  Receipt Date: 20130618
  Transmission Date: 20140414
  Serious: No
  Sender: FDA-Public Use
  Company Number: US-009507513-1305USA015810

PATIENT
  Sex: Female
  Weight: 58.96 kg

DRUGS (5)
  1. CLARITIN [Suspect]
     Indication: RHINORRHOEA
     Dosage: 10 MG, QD PRN
     Route: 048
     Dates: start: 2011
  2. CLARITIN [Suspect]
     Indication: MEDICAL OBSERVATION
     Dosage: 20 MG, UNKNOWN
     Route: 048
  3. FENTANYL [Concomitant]
     Indication: BACK PAIN
     Dosage: UNK, EVERY 2 DAYS
  4. PROVIGIL [Concomitant]
     Indication: NARCOLEPSY
     Dosage: UNK, UNKNOWN
  5. RITALIN [Concomitant]
     Indication: NARCOLEPSY
     Dosage: UNK, UNKNOWN

REACTIONS (2)
  - Drug ineffective [Unknown]
  - Overdose [Unknown]
